FAERS Safety Report 4695338-7 (Version None)
Quarter: 2005Q2

REPORT INFORMATION
  Report Type: 
  Country: None (occurrence: None)
  Receive Date: 20050124
  Receipt Date: 20050124
  Transmission Date: 20051028
  Serious: Yes (Other)
  Sender: FDA-Public Use
  Company Number: None

PATIENT
  Sex: Male
  Weight: 77.1115 kg

DRUGS (4)
  1. KLONOPIN [Suspect]
     Indication: PANIC DISORDER
     Dates: start: 19970101
  2. KLONOPIN [Suspect]
  3. DOXEPIN HCL [Concomitant]
  4. LORAZEPAM [Concomitant]

REACTIONS (4)
  - ANXIETY [None]
  - CONDITION AGGRAVATED [None]
  - PANIC ATTACK [None]
  - PHARMACEUTICAL PRODUCT COMPLAINT [None]
